FAERS Safety Report 4731638-X (Version None)
Quarter: 2005Q3

REPORT INFORMATION
  Report Type: 
  Country: None (occurrence: None)
  Receive Date: 20050802
  Receipt Date: 20050721
  Transmission Date: 20060218
  Serious: Yes (Other)
  Sender: FDA-Public Use
  Company Number: DE-JNJFOC-20050704912

PATIENT
  Sex: Male

DRUGS (10)
  1. RISPERDAL [Suspect]
     Indication: DRUG USE FOR UNKNOWN INDICATION
     Route: 048
  2. ZOLOFT [Suspect]
     Route: 048
  3. ZOLOFT [Suspect]
     Route: 048
  4. ZOLOFT [Suspect]
     Route: 048
  5. ZOLOFT [Suspect]
     Indication: DRUG USE FOR UNKNOWN INDICATION
     Route: 048
  6. ARICEPT [Concomitant]
     Route: 048
     Dates: start: 20050615, end: 20050619
  7. DELIX [Concomitant]
     Route: 048
  8. SORTIS [Concomitant]
     Route: 048
  9. UNAT [Concomitant]
     Route: 048
  10. PANTOPRAZOLE SODIUM [Concomitant]
     Route: 048

REACTIONS (3)
  - ARRHYTHMIA [None]
  - ATRIAL FIBRILLATION [None]
  - PROTHROMBIN TIME PROLONGED [None]
